FAERS Safety Report 4433723-9 (Version None)
Quarter: 2004Q3

REPORT INFORMATION
  Report Type: 
  Country: None (occurrence: None)
  Receive Date: 20040824
  Receipt Date: 20040824
  Transmission Date: 20050211
  Serious: Yes (Hospitalization)
  Sender: FDA-Public Use
  Company Number: None

PATIENT
  Age: 29 Year
  Sex: Female

DRUGS (1)
  1. BRETHINE [Suspect]
     Indication: UTERINE DISORDER
     Dosage: 0.25 MG SQ X1
     Route: 058
     Dates: start: 20040817

REACTIONS (4)
  - APNOEA [None]
  - COMA [None]
  - DIZZINESS [None]
  - DRUG EXPOSURE DURING PREGNANCY [None]
